FAERS Safety Report 8582337-8 (Version None)
Quarter: 2012Q3

REPORT INFORMATION
  Report Type: 
  Country: None (occurrence: None)
  Receive Date: 20120809
  Receipt Date: 20120807
  Transmission Date: 20120928
  Serious: Yes (Other)
  Sender: FDA-Public Use
  Company Number: PHHY2012KW067890

PATIENT
  Age: 19 Year
  Sex: Male

DRUGS (6)
  1. BASILIXIMAB [Suspect]
     Indication: RENAL TRANSPLANT
     Route: 042
  2. STEROIDS [Concomitant]
  3. SIROLIMUS [Concomitant]
  4. TACROLIMUS [Concomitant]
  5. MYCOPHENOLATE MOFETIL [Concomitant]
  6. CYCLOSPORINE [Concomitant]

REACTIONS (5)
  - B-LYMPHOCYTE COUNT DECREASED [None]
  - BLOOD CREATININE INCREASED [None]
  - KIDNEY TRANSPLANT REJECTION [None]
  - COMPLICATIONS OF TRANSPLANTED KIDNEY [None]
  - PNEUMONIA LEGIONELLA [None]
